FAERS Safety Report 6641954-2 (Version None)
Quarter: 2010Q1

REPORT INFORMATION
  Report Type: 
  Country: None (occurrence: None)
  Receive Date: 20100319
  Receipt Date: 20100315
  Transmission Date: 20100710
  Serious: Yes (Other)
  Sender: FDA-Public Use
  Company Number: US-SANOFI-AVENTIS-2010SA010688

PATIENT
  Sex: Female

DRUGS (2)
  1. PLAVIX [Suspect]
     Route: 048
     Dates: start: 20040101, end: 20090101
  2. PLAVIX [Suspect]
     Route: 048
     Dates: start: 20100101

REACTIONS (2)
  - FOOT DEFORMITY [None]
  - OFF LABEL USE [None]
